FAERS Safety Report 4641115-2 (Version None)
Quarter: 2005Q2

REPORT INFORMATION
  Report Type: 
  Country: None (occurrence: None)
  Receive Date: 20050421
  Receipt Date: 20050225
  Transmission Date: 20051028
  Serious: Yes (Death, Hospitalization)
  Sender: FDA-Public Use
  Company Number: BW-BRISTOL-MYERS SQUIBB COMPANY-12877155

PATIENT
  Age: 34 Year
  Sex: Male

DRUGS (6)
  1. EFAVIRENZ [Suspect]
     Indication: HIV INFECTION
     Route: 048
     Dates: start: 20040805
  2. STAVUDINE [Suspect]
     Indication: HIV INFECTION
     Route: 048
     Dates: start: 20040916
  3. COMBIVIR [Suspect]
     Indication: HIV INFECTION
     Dosage: ^900 MG^ DAILY
     Dates: start: 20040805
  4. LAMIVUDINE [Suspect]
     Indication: HIV INFECTION
     Route: 048
     Dates: start: 20040916
  5. FERROUS SULFATE TAB [Concomitant]
     Dates: start: 20041217
  6. FOLIC ACID [Concomitant]
     Dates: start: 20041217

REACTIONS (8)
  - ANAEMIA [None]
  - ASTHENIA [None]
  - COUGH [None]
  - DEHYDRATION [None]
  - DIARRHOEA [None]
  - ORAL CANDIDIASIS [None]
  - PULMONARY TUBERCULOSIS [None]
  - RESPIRATORY TRACT INFECTION [None]
